FAERS Safety Report 9255196 (Version 1)
Quarter: 2013Q2

REPORT INFORMATION
  Report Type: Spontaneous
  Country: US (occurrence: US)
  Receive Date: 20130425
  Receipt Date: 20130425
  Transmission Date: 20140414
  Serious: No
  Sender: FDA-Public Use
  Company Number: US-MYLANLABS-2013S1005772

PATIENT
  Age: 58 Year
  Sex: Female
  Weight: 67.59 kg

DRUGS (1)
  1. CLONIDINE TRANSDERMAL SYSTEM USP [Suspect]
     Indication: HYPERTENSION
     Dosage: CHANGED QW
     Route: 062
     Dates: start: 201212, end: 201302

REACTIONS (2)
  - Application site erythema [Recovered/Resolved]
  - Application site pruritus [Recovered/Resolved]
